FAERS Safety Report 20859317 (Version 2)
Quarter: 2022Q4

REPORT INFORMATION
  Report Type: Spontaneous
  Country: US (occurrence: US)
  Receive Date: 20220523
  Receipt Date: 20221013
  Transmission Date: 20230113
  Serious: No
  Sender: FDA-Public Use
  Company Number: US-JNJFOC-20220540159

PATIENT
  Age: 68 Year
  Sex: Male

DRUGS (1)
  1. ERLEADA [Suspect]
     Active Substance: APALUTAMIDE
     Indication: Product used for unknown indication
     Route: 048
     Dates: start: 20220321

REACTIONS (7)
  - Balance disorder [Unknown]
  - Feeling drunk [Unknown]
  - Off label use [Unknown]
  - Incorrect dose administered [Unknown]
  - Somnolence [Unknown]
  - Vertigo [Unknown]
  - Dizziness [Unknown]
